FAERS Safety Report 4507457-6 (Version None)
Quarter: 2004Q4

REPORT INFORMATION
  Report Type: 
  Country: None (occurrence: None)
  Receive Date: 20041118
  Receipt Date: 20041111
  Transmission Date: 20050328
  Serious: Yes (Other)
  Sender: FDA-Public Use
  Company Number: US-SHR-04-024401

PATIENT
  Age: 49 Year
  Sex: Male

DRUGS (1)
  1. FLUDARA [Suspect]
     Indication: LYMPHOMA
     Dosage: COMPLETED 6 CYCLES OF TREATMENT, INTRAVENOUS
     Route: 042
     Dates: start: 20030801, end: 20040101

REACTIONS (5)
  - ABDOMINAL DISCOMFORT [None]
  - ARTHRALGIA [None]
  - JOINT EFFUSION [None]
  - LUPUS-LIKE SYNDROME [None]
  - RHEUMATOID FACTOR POSITIVE [None]
